FAERS Safety Report 18612629 (Version 1)
Quarter: 2020Q4

REPORT INFORMATION
  Report Type: Spontaneous
  Country: US (occurrence: US)
  Receive Date: 20201214
  Receipt Date: 20201214
  Transmission Date: 20210114
  Serious: Yes (Death)
  Sender: FDA-Public Use
  Company Number: US-FRESENIUS MEDICAL CARE RENAL THERAPIES GROUP-FMC-2012-001521

PATIENT
  Age: 64 Year
  Sex: Female

DRUGS (19)
  1. DELFLEX WITH DEXTROSE 4.25% LOW MAGNESIUM LOW CALCIUM [Suspect]
     Active Substance: CALCIUM CHLORIDE\DEXTROSE\MAGNESIUM CHLORIDE\SODIUM CHLORIDE\SODIUM LACTATE
     Indication: END STAGE RENAL DISEASE
     Dosage: FILL VOLUME 1800 ML, 4 EXCHANGES, LAST FILL 200 ML, NO DAYTIME EXCHANGE, DWELL TIME 1 HOUR AND 39 MI
     Route: 033
  2. GENTAMYCIN [Concomitant]
     Active Substance: GENTAMICIN
  3. MAGNESIUM OXIDE. [Concomitant]
     Active Substance: MAGNESIUM OXIDE
  4. CALCITRIOL. [Concomitant]
     Active Substance: CALCITRIOL
  5. SENSIPAR [Concomitant]
     Active Substance: CINACALCET HYDROCHLORIDE
  6. DELFLEX WITH DEXTROSE 1.5% LOW MAGNESIUM LOW CALCIUM [Suspect]
     Active Substance: CALCIUM CHLORIDE\DEXTROSE\MAGNESIUM CHLORIDE\SODIUM CHLORIDE\SODIUM LACTATE
     Indication: END STAGE RENAL DISEASE
     Dosage: FILL VOLUME 1800 ML, 4 EXCHANGES, LAST FILL 200 ML, NO DAYTIME EXCHANGE, DWELL TIME 1 HOUR AND 39 MI
     Route: 033
  7. ESTRACE [Concomitant]
     Active Substance: ESTRADIOL
  8. LEVOTHYROXINE. [Concomitant]
     Active Substance: LEVOTHYROXINE
  9. PLAVIX [Concomitant]
     Active Substance: CLOPIDOGREL BISULFATE
  10. ENTRESTO [Concomitant]
     Active Substance: SACUBITRIL\VALSARTAN
  11. LASIX [Concomitant]
     Active Substance: FUROSEMIDE
  12. CALCIUM ACETATE. [Concomitant]
     Active Substance: CALCIUM ACETATE
  13. LANTUS [Concomitant]
     Active Substance: INSULIN GLARGINE
  14. LORATADINE. [Concomitant]
     Active Substance: LORATADINE
  15. RENVELA [Concomitant]
     Active Substance: SEVELAMER CARBONATE
  16. SENNA [Concomitant]
     Active Substance: SENNA LEAF\SENNOSIDES\SENNOSIDES A AND B
  17. CRESTOR [Concomitant]
     Active Substance: ROSUVASTATIN CALCIUM
  18. DELFLEX WITH DEXTROSE 2.5% LOW MAGNESIUM LOW CALCIUM [Suspect]
     Active Substance: CALCIUM CHLORIDE\DEXTROSE\MAGNESIUM CHLORIDE\SODIUM CHLORIDE\SODIUM LACTATE
     Indication: END STAGE RENAL DISEASE
     Dosage: FILL VOLUME 1800 ML, 4 EXCHANGES, LAST FILL 200 ML, NO DAYTIME EXCHANGE, DWELL TIME 1 HOUR AND 39 MI
     Route: 033
  19. CARVEDILOL. [Concomitant]
     Active Substance: CARVEDILOL

REACTIONS (1)
  - Cardiac arrest [Fatal]
